FAERS Safety Report 9924328 (Version 3)
Quarter: 2014Q2

REPORT INFORMATION
  Report Type: Spontaneous
  Country: JP (occurrence: JP)
  Receive Date: 20140226
  Receipt Date: 20140507
  Transmission Date: 20141212
  Serious: Yes (Other)
  Sender: FDA-Public Use
  Company Number: JP-ROCHE-1355364

PATIENT
  Age: 63 Year
  Sex: Female

DRUGS (2)
  1. RANIBIZUMAB [Suspect]
     Indication: MACULAR OEDEMA
     Dosage: RIGHT EYE
     Route: 050
     Dates: start: 20131028
  2. RANIBIZUMAB [Suspect]
     Indication: RETINAL VEIN OCCLUSION
     Route: 050

REACTIONS (3)
  - Vitreous haemorrhage [Recovering/Resolving]
  - Macular oedema [Unknown]
  - Condition aggravated [Unknown]
